FAERS Safety Report 13062879 (Version 1)
Quarter: 2016Q4

REPORT INFORMATION
  Report Type: Report from Study
  Country: PK (occurrence: PK)
  Receive Date: 20161226
  Receipt Date: 20161226
  Transmission Date: 20170207
  Serious: Yes (Death)
  Sender: FDA-Public Use
  Company Number: PHHY2016PK178080

PATIENT
  Sex: Male
  Weight: 51 kg

DRUGS (1)
  1. TASIGNA [Suspect]
     Active Substance: NILOTINIB
     Indication: CHRONIC MYELOID LEUKAEMIA
     Dosage: 200 MG, QD (4 CAPSULES (EACH OF 200 MG) PER DAY)
     Route: 048
     Dates: start: 20160720, end: 20161121

REACTIONS (1)
  - Cerebral haemorrhage [Fatal]
